FAERS Safety Report 11422248 (Version 3)
Quarter: 2015Q3

REPORT INFORMATION
  Report Type: Spontaneous
  Country: BR (occurrence: BR)
  Receive Date: 20150827
  Receipt Date: 20150903
  Transmission Date: 20151125
  Serious: Yes (Hospitalization, Disabling, Other)
  Sender: FDA-Public Use
  Company Number: BR-009507513-1508BRA011162

PATIENT
  Age: 31 Year
  Sex: Female
  Weight: 68 kg

DRUGS (1)
  1. NUVARING [Suspect]
     Active Substance: ETHINYL ESTRADIOL\ETONOGESTREL
     Indication: CONTRACEPTION
     Dosage: 1 RING EVERY 3 WEEKS AND 1 WEEK OF FREE INTERVAL
     Route: 067
     Dates: start: 201301, end: 20150806

REACTIONS (11)
  - Amnesia [Recovering/Resolving]
  - Post-traumatic stress disorder [Not Recovered/Not Resolved]
  - Disturbance in attention [Recovering/Resolving]
  - Dizziness [Recovering/Resolving]
  - Stress [Recovering/Resolving]
  - Emotional disorder [Recovering/Resolving]
  - Job dissatisfaction [Recovering/Resolving]
  - Fear [Recovering/Resolving]
  - Blood pressure fluctuation [Recovering/Resolving]
  - Cerebral venous thrombosis [Recovered/Resolved with Sequelae]
  - Seizure [Recovering/Resolving]

NARRATIVE: CASE EVENT DATE: 201508
